FAERS Safety Report 9263555 (Version 1)
Quarter: 2013Q2

REPORT INFORMATION
  Report Type: Spontaneous
  Country: GB (occurrence: GB)
  Receive Date: 20130430
  Receipt Date: 20130507
  Transmission Date: 20140414
  Serious: Yes (Hospitalization, Other)
  Sender: FDA-Public Use
  Company Number: GB-PFIZER INC-2013128813

PATIENT
  Age: 74 Year
  Sex: Male

DRUGS (7)
  1. AMOXICILLIN TRIHYDRATE/CLAVULANATE POTASSIUM [Suspect]
     Indication: INFECTION
     Dosage: 625 MG, 3X/DAY
     Route: 065
  2. AMOXICILLIN TRIHYDRATE/CLAVULANATE POTASSIUM [Suspect]
     Indication: ULCER
  3. METRONIDAZOLE [Suspect]
     Indication: INFECTION
     Dosage: 400 MG, 3X/DAY
     Route: 065
  4. METRONIDAZOLE [Suspect]
     Indication: ULCER
  5. FLUCLOXACILLIN [Suspect]
     Indication: INFECTION
     Dosage: 500 MG, 4X/DAY
     Route: 048
  6. FLUCLOXACILLIN [Suspect]
     Indication: ULCER
  7. WARFARIN [Suspect]
     Indication: DEEP VEIN THROMBOSIS
     Dosage: UNK
     Route: 065

REACTIONS (19)
  - Skin necrosis [Recovering/Resolving]
  - Skin lesion [Recovering/Resolving]
  - Condition aggravated [Recovering/Resolving]
  - Vasculitis [Recovering/Resolving]
  - Skin ulcer [Recovering/Resolving]
  - Oedema peripheral [Recovering/Resolving]
  - Contusion [Recovering/Resolving]
  - Blister [Recovering/Resolving]
  - Inflammation [Recovering/Resolving]
  - Blister [Recovering/Resolving]
  - Pain [Recovered/Resolved]
  - Pyrexia [Recovered/Resolved]
  - Thrombosis [Unknown]
  - Swelling [Unknown]
  - Cellulitis [Unknown]
  - Dysbacteriosis [Unknown]
  - Staphylococcal infection [Unknown]
  - Confusional state [Unknown]
  - Popliteal pulse [Unknown]
